FAERS Safety Report 6997163-0 (Version None)
Quarter: 2010Q3

REPORT INFORMATION
  Report Type: 
  Country: None (occurrence: None)
  Receive Date: 20100918
  Receipt Date: 20090916
  Transmission Date: 20110219
  Serious: No
  Sender: FDA-Public Use
  Company Number: US-WYE-H11045509

PATIENT
  Sex: Female

DRUGS (5)
  1. PRISTIQ [Suspect]
     Indication: ANXIETY
     Route: 048
     Dates: start: 20090801
  2. COLESTIPOL HYDROCHLORIDE [Concomitant]
  3. SINGULAIR [Concomitant]
  4. CRESTOR [Concomitant]
  5. NEXIUM [Concomitant]

REACTIONS (1)
  - ORGASM ABNORMAL [None]
